FAERS Safety Report 4996111-2 (Version None)
Quarter: 2006Q2

REPORT INFORMATION
  Report Type: 
  Country: None (occurrence: None)
  Receive Date: 20060504
  Receipt Date: 20060425
  Transmission Date: 20061013
  Serious: Yes (Hospitalization)
  Sender: FDA-Public Use
  Company Number: 2006056608

PATIENT
  Age: 65 Year
  Sex: Female
  Weight: 65 kg

DRUGS (7)
  1. SOLU-MEDROL [Suspect]
     Indication: ILL-DEFINED DISORDER
     Dosage: 120 MG (120 MG, 1 IN 1 D), INTRAVENOUS
     Route: 042
     Dates: start: 20060215
  2. POLARAMINE [Suspect]
     Indication: ILL-DEFINED DISORDER
     Dosage: 5 MG (5 MG, 1 IN 1 D), INTRAVENOUS
     Route: 042
     Dates: start: 20060215
  3. TAXOL [Suspect]
     Indication: NEOPLASM MALIGNANT
     Dosage: 300 MG (300 MG, 1 IN 1 D), INTRAVENOUS
     Route: 042
     Dates: start: 20060215
  4. CARBOPLATIN [Suspect]
     Indication: NEOPLASM MALIGNANT
     Dosage: 550 MG (550 MG, 1 IN 1 D), INTRAVENOUS
     Route: 042
     Dates: start: 20060215
  5. RANITIDINE HYDROCHLORIDE [Suspect]
     Indication: ILL-DEFINED DISORDER
     Dosage: 50 MG (50 MG, 1 IN 1 D), INTRAVENOUS
     Route: 042
     Dates: start: 20060215
  6. ZOFRAN [Suspect]
     Indication: ILL-DEFINED DISORDER
     Dosage: 8 MG (8 MG, 1 IN 1 D), INTRAVENOUS
     Route: 042
     Dates: start: 20060215
  7. LEVOTHYROXINE SODIUM [Concomitant]

REACTIONS (5)
  - DERMATITIS EXFOLIATIVE [None]
  - DYSPNOEA [None]
  - HYPOTENSION [None]
  - LOSS OF CONSCIOUSNESS [None]
  - MALAISE [None]
